FAERS Safety Report 8957375 (Version 1)
Quarter: 2012Q4

REPORT INFORMATION
  Report Type: 
  Country: US (occurrence: US)
  Receive Date: 20121211
  Receipt Date: 20121211
  Transmission Date: 20130627
  Serious: Yes (Hospitalization)
  Sender: FDA-Public Use
  Company Number: US-ROCHE-1163576

PATIENT
  Sex: Male
  Weight: 91.25 kg

DRUGS (2)
  1. RITUXAN [Suspect]
     Indication: LYMPHOMA
     Route: 042
     Dates: start: 20101014, end: 20110317
  2. VELCADE [Concomitant]
     Indication: LYMPHOMA
     Route: 042
     Dates: start: 20101014, end: 20110317

REACTIONS (2)
  - Pulmonary fibrosis [Recovered/Resolved]
  - Respiratory distress [Recovered/Resolved]
